FAERS Safety Report 7875578-6 (Version None)
Quarter: 2011Q4

REPORT INFORMATION
  Report Type: 
  Country: None (occurrence: None)
  Receive Date: 20111031
  Receipt Date: 20111017
  Transmission Date: 20120403
  Serious: Yes (Hospitalization)
  Sender: FDA-Public Use
  Company Number: IE-ELI_LILLY_AND_COMPANY-IE201110004295

PATIENT
  Sex: Female

DRUGS (6)
  1. PANTOPRAZOLE [Concomitant]
  2. ASPIRIN [Concomitant]
     Dosage: UNK, UNKNOWN
  3. ASPIRIN [Concomitant]
     Dosage: UNK, UNKNOWN
  4. FORTEO [Suspect]
     Indication: OSTEOPOROSIS
     Dosage: 20 UG, UNK
     Dates: start: 20111013
  5. LACTOSE [Concomitant]
  6. DICLOFENAC SODIUM [Concomitant]

REACTIONS (2)
  - HOSPITALISATION [None]
  - INJECTION SITE HAEMORRHAGE [None]
